FAERS Safety Report 9908772 (Version 2)
Quarter: 2014Q1

REPORT INFORMATION
  Report Type: Spontaneous
  Country: IT (occurrence: IT)
  Receive Date: 20140219
  Receipt Date: 20140221
  Transmission Date: 20141002
  Serious: Yes (Hospitalization)
  Sender: FDA-Public Use
  Company Number: IT-BAYER-2014-022473

PATIENT
  Age: 79 Year
  Sex: Female

DRUGS (4)
  1. CARDIOASPIRIN [Suspect]
     Indication: THROMBOSIS PROPHYLAXIS
     Dosage: DAILY DOSE 100 MG
     Route: 048
     Dates: start: 20130101, end: 20131220
  2. KCL-RETARD [Concomitant]
     Route: 048
  3. NORVASC [Concomitant]
     Route: 048
  4. TEGRETOL [Concomitant]
     Route: 048

REACTIONS (3)
  - Rectal haemorrhage [Unknown]
  - Haematemesis [Unknown]
  - Dizziness [Unknown]
